FAERS Safety Report 4716391-8 (Version None)
Quarter: 2005Q3

REPORT INFORMATION
  Report Type: 
  Country: None (occurrence: None)
  Receive Date: 20050713
  Receipt Date: 20050701
  Transmission Date: 20060218
  Serious: Yes (Hospitalization)
  Sender: FDA-Public Use
  Company Number: HQWYE958401JUL05

PATIENT
  Age: 82 Year
  Sex: Female

DRUGS (2)
  1. CORDARONE [Suspect]
     Dosage: 150 MG 1X PER 1 DAY
     Route: 042
     Dates: start: 20050621, end: 20050621
  2. CELECTOL [Concomitant]

REACTIONS (2)
  - ASTHMA [None]
  - CONTRAINDICATION TO MEDICAL TREATMENT [None]
